FAERS Safety Report 7644770 (Version 3)
Quarter: 2014Q3

REPORT INFORMATION
  Report Type: Spontaneous
  Country: JP (occurrence: JP)
  Receive Date: 20101028
  Receipt Date: 20140819
  Transmission Date: 20150326
  Serious: Yes (Death, Other)
  Sender: FDA-Public Use
  Company Number: PHHY2010JP71170

PATIENT
  Age: 69 Year
  Sex: Male
  Weight: 59 kg

DRUGS (18)
  1. PURSENNID [Concomitant]
     Active Substance: SENNOSIDES A AND B CALCIUM
     Dosage: 24 MG, UNK
     Route: 048
     Dates: start: 20091221, end: 20101012
  2. SUNITINIB MALATE [Concomitant]
     Active Substance: SUNITINIB MALATE
     Indication: METASTATIC RENAL CELL CARCINOMA
     Dosage: 37.5 MG, UNK
     Route: 048
     Dates: start: 20100413, end: 20100720
  3. ADALAT CC [Concomitant]
     Active Substance: NIFEDIPINE
     Dosage: 80 MG, UNK
     Route: 048
     Dates: start: 20100412, end: 20101012
  4. MUCOSOLVAN [Concomitant]
     Active Substance: AMBROXOL\CLENBUTEROL
     Indication: METASTATIC RENAL CELL CARCINOMA
     Dosage: 45 MG, UNK
     Route: 048
     Dates: start: 20090914, end: 20101012
  5. AFINITOR [Suspect]
     Active Substance: EVEROLIMUS
     Dosage: 5 MG, DAILY
     Route: 048
     Dates: start: 20101008
  6. EXCEGRAN [Concomitant]
     Active Substance: ZONISAMIDE
     Indication: METASTATIC RENAL CELL CARCINOMA
     Dosage: 200 MG, UNK
     Route: 048
     Dates: start: 20090629, end: 20101012
  7. ROXATIDINE ACETATE HYDROCHLORIDE [Concomitant]
     Active Substance: ROXATIDINE ACETATE HYDROCHLORIDE
     Dosage: 75 MG, UNK
     Route: 048
     Dates: start: 20100709, end: 20101012
  8. AFINITOR [Suspect]
     Active Substance: EVEROLIMUS
     Dosage: 05 MG,DAILY
     Route: 048
     Dates: start: 20100915, end: 20100921
  9. CALCIUM POLYSTYRENE SULFONATE [Concomitant]
     Active Substance: CALCIUM POLYSTYRENE SULFONATE
     Dosage: 50 G, UNK
     Route: 048
     Dates: start: 20091109, end: 20101012
  10. MYSLEE [Concomitant]
     Active Substance: ZOLPIDEM TARTRATE
     Dosage: 10 MG, UNK
     Route: 048
     Dates: start: 20100630, end: 20101012
  11. KREMEZIN [Concomitant]
     Active Substance: ACTIVATED CHARCOAL
     Dosage: 2400 MG, UNK
     Route: 048
     Dates: start: 20100315, end: 20101012
  12. BLOPRESS [Concomitant]
     Active Substance: CANDESARTAN CILEXETIL
     Dosage: 8 MG, UNK
     Route: 048
     Dates: start: 20100412, end: 20101012
  13. AFINITOR [Suspect]
     Active Substance: EVEROLIMUS
     Indication: RENAL CELL CARCINOMA
     Dosage: 10 MG DAILY
     Route: 048
     Dates: start: 20100810, end: 20100914
  14. NEXAVAR [Concomitant]
     Active Substance: SORAFENIB
     Indication: METASTATIC RENAL CELL CARCINOMA
     Dosage: 400 MG, UNK
     Dates: start: 20090302, end: 20100331
  15. AFINITOR [Suspect]
     Active Substance: EVEROLIMUS
     Dosage: 10 MG, DAILY
     Route: 048
     Dates: start: 20100922, end: 20101007
  16. MAGLAX [Concomitant]
     Active Substance: MAGNESIUM OXIDE
     Dosage: 990 MG, UNK
     Route: 048
     Dates: start: 20090709, end: 20101012
  17. PYDOXAL [Concomitant]
     Active Substance: PYRIDOXAL
     Indication: METASTATIC RENAL CELL CARCINOMA
     Dosage: 8 MG, UNK
     Route: 048
     Dates: start: 20100412, end: 20101012
  18. CODEINE PHOSPHATE [Concomitant]
     Active Substance: CODEINE PHOSPHATE
     Indication: METASTATIC RENAL CELL CARCINOMA
     Dosage: 60 MG, UNK
     Route: 048
     Dates: start: 20100915, end: 20101012

REACTIONS (9)
  - Acute respiratory distress syndrome [Fatal]
  - Blood creatinine increased [Not Recovered/Not Resolved]
  - Respiratory failure [Fatal]
  - Cardiac arrest [Unknown]
  - Blood lactic acid increased [Unknown]
  - Anaemia [Not Recovered/Not Resolved]
  - C-reactive protein increased [Unknown]
  - Hyperglycaemia [Recovering/Resolving]
  - Pulmonary oedema [Fatal]

NARRATIVE: CASE EVENT DATE: 20100915
